FAERS Safety Report 7249387-5 (Version None)
Quarter: 2011Q1

REPORT INFORMATION
  Report Type: 
  Country: None (occurrence: None)
  Receive Date: 20110128
  Receipt Date: 20101130
  Transmission Date: 20110831
  Serious: Yes (Hospitalization, Other)
  Sender: FDA-Public Use
  Company Number: US-BAYER-201025974NA

PATIENT
  Sex: Female
  Weight: 90.703 kg

DRUGS (14)
  1. HYDROCODONE [Concomitant]
     Indication: PRODUCT USED FOR UNKNOWN INDICATION
     Dosage: UNK
     Dates: start: 20080226
  2. PIROXICAM [NICOTINAMIDE,PIROXICAM] [Concomitant]
     Indication: PRODUCT USED FOR UNKNOWN INDICATION
     Dosage: UNK
     Dates: start: 20080923
  3. YASMIN [Suspect]
     Indication: PRODUCT USED FOR UNKNOWN INDICATION
     Dosage: UNK UNK, UNK
     Route: 048
     Dates: start: 20071108, end: 20080401
  4. ZOLOFT [Concomitant]
     Indication: PRODUCT USED FOR UNKNOWN INDICATION
     Dosage: DAILY DOSE -1 MG
     Dates: start: 20071029
  5. OXYCODONE AND ACETAMINOPHEN [Concomitant]
     Indication: PRODUCT USED FOR UNKNOWN INDICATION
     Dosage: UNK
     Dates: start: 20080331
  6. CYCLOBENZAPRINE [Concomitant]
  7. CIPROFLOXACIN [Concomitant]
     Indication: PRODUCT USED FOR UNKNOWN INDICATION
     Dosage: 500 UNK, UNK
     Route: 048
     Dates: start: 20080226
  8. NAPROXEN [Concomitant]
     Indication: PRODUCT USED FOR UNKNOWN INDICATION
     Dosage: 500 MG, UNK
     Dates: start: 20080331
  9. ZANTAC [Concomitant]
     Indication: PRODUCT USED FOR UNKNOWN INDICATION
     Dosage: 150 MG, BID
     Dates: start: 20080130
  10. PIROXICAM [NICOTINAMIDE,PIROXICAM] [Concomitant]
     Dosage: UNK
     Dates: start: 20090116
  11. PIROXICAM [NICOTINAMIDE,PIROXICAM] [Concomitant]
     Dosage: UNK
     Dates: start: 20090219
  12. LORTAB [Concomitant]
     Indication: PRODUCT USED FOR UNKNOWN INDICATION
     Dosage: 7.5 MG, UNK
     Dates: start: 20080130
  13. BUSPIRONE [Concomitant]
     Indication: PRODUCT USED FOR UNKNOWN INDICATION
     Dosage: UNK
     Dates: start: 20080219
  14. PIROXICAM [NICOTINAMIDE,PIROXICAM] [Concomitant]
     Dosage: UNK
     Dates: start: 20081216

REACTIONS (8)
  - ABDOMINAL TENDERNESS [None]
  - VOMITING [None]
  - DYSPEPSIA [None]
  - ABDOMINAL PAIN UPPER [None]
  - ABDOMINAL PAIN [None]
  - NAUSEA [None]
  - CHOLELITHIASIS [None]
  - FAT INTOLERANCE [None]
